FAERS Safety Report 19973613 (Version 5)
Quarter: 2021Q4

REPORT INFORMATION
  Report Type: Spontaneous
  Country: RU (occurrence: RU)
  Receive Date: 20211020
  Receipt Date: 20211222
  Transmission Date: 20220304
  Serious: Yes (Death, Life-Threatening, Hospitalization)
  Sender: FDA-Public Use
  Company Number: RU-CELGENE-RUS-20211004290

PATIENT
  Age: 67 Year
  Sex: Female
  Weight: 73 kg

DRUGS (29)
  1. AZACITIDINE [Suspect]
     Active Substance: AZACITIDINE
     Indication: Myelodysplastic syndrome
     Route: 041
     Dates: start: 20210817, end: 20210823
  2. AZACITIDINE [Suspect]
     Active Substance: AZACITIDINE
     Route: 041
     Dates: start: 20210923, end: 20210929
  3. VENETOCLAX [Suspect]
     Active Substance: VENETOCLAX
     Indication: Myelodysplastic syndrome
     Route: 048
  4. ALLOPURINOL [Concomitant]
     Active Substance: ALLOPURINOL
     Indication: Prophylaxis
     Route: 048
     Dates: start: 20210817, end: 20210824
  5. ALLOPURINOL [Concomitant]
     Active Substance: ALLOPURINOL
     Indication: Hyperuricaemia
     Route: 048
     Dates: start: 20210923, end: 20210929
  6. SODIUM CHLORIDE [Concomitant]
     Active Substance: SODIUM CHLORIDE
     Indication: Prophylaxis
     Route: 041
     Dates: start: 20210817, end: 20210824
  7. SODIUM CHLORIDE [Concomitant]
     Active Substance: SODIUM CHLORIDE
     Route: 041
     Dates: start: 20210923, end: 20210929
  8. EMPEGFILGRASTIM [Concomitant]
     Indication: Prophylaxis
     Route: 058
     Dates: start: 20210820, end: 20210820
  9. OMEPRAZOLE [Concomitant]
     Active Substance: OMEPRAZOLE
     Indication: Prophylaxis against gastrointestinal ulcer
     Dosage: 40 MILLIGRAM
     Route: 048
     Dates: start: 20210727
  10. TRANEXAMIC ACID [Concomitant]
     Active Substance: TRANEXAMIC ACID
     Indication: Prophylaxis
     Dosage: 500 MILLIGRAM
     Route: 041
     Dates: start: 20210810, end: 20210915
  11. TRANEXAMIC ACID [Concomitant]
     Active Substance: TRANEXAMIC ACID
     Dosage: 500 MILLIGRAM
     Route: 041
     Dates: start: 20210922
  12. MEROPENEM [Concomitant]
     Active Substance: MEROPENEM
     Indication: Infection prophylaxis
     Dosage: 3 MILLIGRAM
     Route: 041
     Dates: start: 20210810, end: 20210927
  13. MEROPENEM [Concomitant]
     Active Substance: MEROPENEM
     Dosage: 3 MILLIGRAM
     Route: 041
     Dates: start: 20210928
  14. METFORMIN [Concomitant]
     Active Substance: METFORMIN HYDROCHLORIDE
     Indication: Diabetes mellitus
     Dosage: 2 MILLIGRAM
     Route: 048
     Dates: start: 20010101, end: 20211012
  15. INSULIN FIASP [Concomitant]
     Indication: Diabetes mellitus
     Dosage: 30 UNIT
     Route: 058
     Dates: start: 20190101, end: 20211013
  16. INSULIN TUJEO SOLOSTAR [Concomitant]
     Indication: Diabetes mellitus
     Dosage: 50 UNIT
     Route: 058
     Dates: start: 20190101
  17. VANCOMYCIN [Concomitant]
     Active Substance: VANCOMYCIN
     Indication: Hyperthermia
     Dosage: 1 MILLIGRAM
     Route: 058
     Dates: start: 20210830, end: 20211004
  18. LEVOFLOXACIN [Concomitant]
     Active Substance: LEVOFLOXACIN
     Indication: Infection prophylaxis
     Dosage: 500 MILLIGRAM
     Route: 048
     Dates: start: 20210906, end: 20210915
  19. POSACONAZOLE [Concomitant]
     Active Substance: POSACONAZOLE
     Indication: Antifungal prophylaxis
     Dosage: 200 MILLIGRAM
     Route: 048
     Dates: start: 20210907, end: 20210915
  20. AMIKACIN [Concomitant]
     Active Substance: AMIKACIN
     Indication: Hyperthermia
     Dosage: 1000 MILLIGRAM
     Route: 048
     Dates: start: 20210914, end: 20210921
  21. CIPROFLOXACIN [Concomitant]
     Active Substance: CIPROFLOXACIN
     Indication: Infection prophylaxis
     Dosage: 500 MILLIGRAM
     Route: 048
     Dates: start: 20210922, end: 20210929
  22. URSODIOL [Concomitant]
     Active Substance: URSODIOL
     Indication: Antiviral prophylaxis
     Dosage: 1000 MILLIGRAM
     Route: 048
     Dates: start: 20210922
  23. ONDANSETRON [Concomitant]
     Active Substance: ONDANSETRON
     Indication: Prophylaxis of nausea and vomiting
     Dosage: 8 MILLIGRAM
     Route: 041
     Dates: start: 20210923, end: 20210929
  24. TRAMADOL [Concomitant]
     Active Substance: TRAMADOL
     Indication: Spinal osteoarthritis
     Dosage: 200 MILLIGRAM
     Route: 041
     Dates: start: 20210928, end: 20211004
  25. KETOPROFEN [Concomitant]
     Active Substance: KETOPROFEN
     Indication: Spinal osteoarthritis
     Dosage: 200 MILLIGRAM
     Route: 041
     Dates: start: 20210928, end: 20211004
  26. DICLOFENAC [Concomitant]
     Active Substance: DICLOFENAC
     Indication: Spinal osteoarthritis
     Dosage: 75 MILLIGRAM
     Route: 030
     Dates: start: 20211001
  27. FENTANYL TRANSDERMAL SYSTEM [Concomitant]
     Active Substance: FENTANYL
     Indication: Spinal osteoarthritis
     Dosage: 50 MICROGRAMS PER HOUR
     Route: 062
     Dates: start: 20211003, end: 20211005
  28. MAGNESIUM SULFATE [Concomitant]
     Active Substance: MAGNESIUM SULFATE
     Indication: Product used for unknown indication
     Dosage: 200 MILLIGRAM
     Route: 041
     Dates: start: 20211005
  29. TOLPERIZON [Concomitant]
     Indication: Arthralgia
     Dosage: 100 MILLIGRAM
     Route: 048
     Dates: start: 20211007

REACTIONS (3)
  - Multiple organ dysfunction syndrome [Fatal]
  - Respiratory failure [Unknown]
  - Neutropenia [Unknown]

NARRATIVE: CASE EVENT DATE: 20210923
